FAERS Safety Report 25572404 (Version 1)
Quarter: 2025Q3

REPORT INFORMATION
  Report Type: Spontaneous
  Country: US (occurrence: US)
  Receive Date: 20250717
  Receipt Date: 20250717
  Transmission Date: 20251021
  Serious: Yes (Hospitalization, Other)
  Sender: GLAXOSMITHKLINE
  Company Number: US-GSK-US2025GSK089627

PATIENT
  Age: 51 Year
  Sex: Male

DRUGS (3)
  1. BUPROPION HYDROCHLORIDE [Suspect]
     Active Substance: BUPROPION HYDROCHLORIDE
     Indication: Product used for unknown indication
  2. CITALOPRAM [Suspect]
     Active Substance: CITALOPRAM
     Indication: Product used for unknown indication
  3. TRAZODONE [Suspect]
     Active Substance: TRAZODONE HYDROCHLORIDE
     Indication: Product used for unknown indication

REACTIONS (7)
  - Cardiotoxicity [Recovered/Resolved]
  - Encephalopathy [Recovered/Resolved]
  - Hypoxia [Recovered/Resolved]
  - Serotonin syndrome [Recovered/Resolved]
  - Suicide attempt [Unknown]
  - Toxicity to various agents [Unknown]
  - Intentional overdose [Unknown]
